FAERS Safety Report 7387081-0 (Version None)
Quarter: 2011Q1

REPORT INFORMATION
  Report Type: 
  Country: None (occurrence: None)
  Receive Date: 20110331
  Receipt Date: 20110325
  Transmission Date: 20110831
  Serious: Yes (Hospitalization)
  Sender: FDA-Public Use
  Company Number: FR-MERCK-1102FRA00031

PATIENT
  Age: 20 Year
  Sex: Female

DRUGS (9)
  1. IFOSFAMIDE [Suspect]
     Route: 042
     Dates: start: 20101231
  2. MESNA [Concomitant]
     Route: 042
     Dates: start: 20101231, end: 20110102
  3. ONDANSETRON HYDROCHLORIDE [Concomitant]
     Route: 042
     Dates: start: 20101231
  4. EMEND [Suspect]
     Indication: PROPHYLAXIS OF NAUSEA AND VOMITING
     Route: 048
     Dates: start: 20101231, end: 20101231
  5. DACARBAZINE [Concomitant]
     Route: 042
     Dates: start: 20101231, end: 20110102
  6. DOXORUBICIN [Concomitant]
     Route: 042
     Dates: start: 20101231, end: 20110102
  7. EMEND [Suspect]
     Route: 048
     Dates: start: 20110101, end: 20110102
  8. ESOMEPRAZOLE MAGNESIUM [Concomitant]
     Route: 048
     Dates: start: 20101221
  9. METHYLPREDNISOLONE [Concomitant]
     Route: 042
     Dates: start: 20101231, end: 20110102

REACTIONS (1)
  - ENCEPHALOPATHY [None]
